FAERS Safety Report 7429060-0 (Version None)
Quarter: 2011Q2

REPORT INFORMATION
  Report Type: 
  Country: None (occurrence: None)
  Receive Date: 20110421
  Receipt Date: 20110420
  Transmission Date: 20111010
  Serious: Yes (Other)
  Sender: FDA-Public Use
  Company Number: TW-ROCHE-770616

PATIENT
  Age: 53 Year
  Sex: Male

DRUGS (3)
  1. CEFTRIAXONE [Suspect]
     Indication: BRAIN ABSCESS
     Route: 065
  2. VANCOMYCIN [Concomitant]
     Indication: BRAIN ABSCESS
  3. METRONIDAZOLE [Concomitant]
     Indication: BRAIN ABSCESS

REACTIONS (1)
  - BONE MARROW FAILURE [None]
